FAERS Safety Report 7255638 (Version 2)
Quarter: 2013Q1

REPORT INFORMATION
  Report Type: Spontaneous
  Country: US (occurrence: US)
  Receive Date: 20100125
  Receipt Date: 20130107
  Transmission Date: 20140127
  Serious: No
  Sender: FDA-Public Use
  Company Number: US-TYCO HEALTHCARE/MALLINCKRODT-T200901538

PATIENT
  Age: 34 Year
  Sex: Female

DRUGS (1)
  1. OPTIRAY [Suspect]
     Dosage: 100 ML, SINGLE
     Route: 042
     Dates: start: 20090807, end: 20090807

REACTIONS (2)
  - Rash [Recovered/Resolved]
  - Pruritus [Recovered/Resolved]
